FAERS Safety Report 8588587-9 (Version None)
Quarter: 2012Q3

REPORT INFORMATION
  Report Type: 
  Country: None (occurrence: None)
  Receive Date: 20120813
  Receipt Date: 20120803
  Transmission Date: 20120928
  Serious: Yes (Hospitalization, Disabling, Other)
  Sender: FDA-Public Use
  Company Number: BR-JNJFOC-20120705597

PATIENT
  Sex: Male
  Weight: 90 kg

DRUGS (4)
  1. REMICADE [Suspect]
     Indication: CROHN'S DISEASE
     Route: 042
     Dates: start: 20120703, end: 20120718
  2. MESALAMINE [Concomitant]
     Indication: INFLAMMATION
     Route: 065
     Dates: start: 20111101
  3. MULTI-VITAMINS [Concomitant]
     Route: 065
  4. DIPYRONE INJ [Concomitant]
     Indication: PAIN
     Route: 065
     Dates: start: 20110101

REACTIONS (13)
  - SEPSIS [None]
  - DIZZINESS [None]
  - ARTHRALGIA [None]
  - HEART RATE IRREGULAR [None]
  - OEDEMA PERIPHERAL [None]
  - BACK PAIN [None]
  - DERMATITIS ALLERGIC [None]
  - MUSCULAR WEAKNESS [None]
  - MOVEMENT DISORDER [None]
  - JOINT SWELLING [None]
  - PARALYSIS [None]
  - DYSPNOEA [None]
  - OROPHARYNGEAL PAIN [None]
